FAERS Safety Report 7225416-X (Version None)
Quarter: 2011Q1

REPORT INFORMATION
  Report Type: 
  Country: None (occurrence: None)
  Receive Date: 20110113
  Receipt Date: 20101228
  Transmission Date: 20110831
  Serious: Yes (Other)
  Sender: FDA-Public Use
  Company Number: JP-CELGENEUS-087-21880-11010932

PATIENT
  Sex: Male
  Weight: 40 kg

DRUGS (6)
  1. REVLIMID [Suspect]
     Indication: MULTIPLE MYELOMA
     Route: 048
     Dates: start: 20100824, end: 20100913
  2. REVLIMID [Suspect]
     Route: 048
     Dates: start: 20101214
  3. REVLIMID [Suspect]
     Route: 048
     Dates: start: 20100922, end: 20101012
  4. REVLIMID [Suspect]
     Route: 048
     Dates: start: 20101116, end: 20101206
  5. LENADEX [Suspect]
     Indication: MULTIPLE MYELOMA
     Route: 048
     Dates: start: 20100824, end: 20100827
  6. REVLIMID [Suspect]
     Route: 048
     Dates: start: 20101019, end: 20101108

REACTIONS (9)
  - THROMBOCYTOPENIA [None]
  - RASH [None]
  - DELIRIUM [None]
  - MALAISE [None]
  - NEUTROPHIL PERCENTAGE DECREASED [None]
  - HAEMOGLOBIN DECREASED [None]
  - WHITE BLOOD CELL COUNT DECREASED [None]
  - CONSTIPATION [None]
  - WITHDRAWAL SYNDROME [None]
